FAERS Safety Report 4619514-4 (Version None)
Quarter: 2005Q1

REPORT INFORMATION
  Report Type: 
  Country: None (occurrence: None)
  Receive Date: 20050318
  Receipt Date: 20050318
  Transmission Date: 20050727
  Serious: Yes (Hospitalization)
  Sender: FDA-Public Use
  Company Number: None

PATIENT
  Sex: Female
  Weight: 86.1834 kg

DRUGS (9)
  1. COUMADIN [Suspect]
     Indication: ATRIAL FIBRILLATION
     Dosage: PO, [PRIOR TO ADMISSION]
     Route: 048
  2. PLAVIX [Suspect]
     Indication: ATRIAL FIBRILLATION
     Dosage: PO
     Route: 048
  3. ECOTRIN [Suspect]
     Indication: ATRIAL FIBRILLATION
     Dosage: PO
     Route: 048
  4. LIPITOR [Concomitant]
  5. IMDUR [Concomitant]
  6. SYNTHROID [Concomitant]
  7. ZOLOFT [Concomitant]
  8. DEMADEX [Concomitant]
  9. ROCALTROL [Concomitant]

REACTIONS (7)
  - ASTHENIA [None]
  - DIARRHOEA [None]
  - HAEMATEMESIS [None]
  - HAEMATOCHEZIA [None]
  - HAEMOPTYSIS [None]
  - NAUSEA [None]
  - VOMITING [None]
